FAERS Safety Report 7522764 (Version 5)
Quarter: 2012Q4

REPORT INFORMATION
  Report Type: 
  Country: US (occurrence: US)
  Receive Date: 20100803
  Receipt Date: 20120831
  Transmission Date: 20130627
  Serious: Yes (Hospitalization, Other)
  Sender: FDA-Public Use
  Company Number: US-ELI_LILLY_AND_COMPANY-US201007006400

PATIENT
  Age: 68 Year
  Sex: Female

DRUGS (18)
  1. FORTEO [Suspect]
     Indication: OSTEOPOROSIS
     Dosage: 20 ug, daily (1/D)
     Dates: start: 20100623, end: 20100716
  2. FORTEO [Suspect]
     Dosage: 20 ug, daily (1/D)
     Dates: start: 20100907
  3. CALCIUM [Concomitant]
     Indication: CALCIUM DEFICIENCY
  4. ARANESP [Concomitant]
     Dosage: 25 ug, weekly (1/W)
  5. ULTRAM [Concomitant]
     Dosage: UNK, 2/D
  6. VITAMIN D NOS [Concomitant]
     Dosage: 50000 u, monthly (1/M)
  7. COUMADIN [Concomitant]
     Dosage: 0.5 mg, qod
  8. CARAFATE [Concomitant]
     Dosage: 1 g, as needed
  9. PRILOSEC [Concomitant]
     Dosage: 20 mg, 2/D
  10. IRON [Concomitant]
     Dosage: 200 mg, monthly (1/M)
  11. PROAMATINE [Concomitant]
     Dosage: 10 mg, 2/D
  12. CLARITIN [Concomitant]
     Dosage: 10 mg, daily (1/D)
  13. TYLENOL /00020001/ [Concomitant]
  14. TUSSIONEX [Concomitant]
  15. VITAMIN C [Concomitant]
     Dosage: 500 mg, daily (1/D)
  16. ZOCOR [Concomitant]
     Indication: BLOOD CHOLESTEROL INCREASED
     Dosage: 40 mg, daily (1/D)
  17. KAYEXALATE [Concomitant]
     Dosage: UNK, as needed
  18. DIALVIT [Concomitant]
     Dosage: UNK, daily (1/D)

REACTIONS (15)
  - Gastrointestinal viral infection [Recovered/Resolved]
  - Hypotension [Recovered/Resolved]
  - Arthralgia [Recovered/Resolved]
  - Pelvic fracture [Unknown]
  - Bone pain [Unknown]
  - Blood alkaline phosphatase increased [Unknown]
  - Blood parathyroid hormone increased [Unknown]
  - Musculoskeletal pain [Recovered/Resolved]
  - Arthralgia [Not Recovered/Not Resolved]
  - Arthropod bite [Unknown]
  - Pyrexia [Recovered/Resolved]
  - Lipase increased [Unknown]
  - Bone density decreased [Recovering/Resolving]
  - Intentional drug misuse [Unknown]
  - Drug prescribing error [Unknown]
